FAERS Safety Report 23204044 (Version 1)
Quarter: 2023Q4

REPORT INFORMATION
  Report Type: Spontaneous
  Country: IN (occurrence: IN)
  Receive Date: 20231120
  Receipt Date: 20231120
  Transmission Date: 20240110
  Serious: Yes (Life-Threatening, Hospitalization, Other)
  Sender: FDA-Public Use
  Company Number: IN-RISINGPHARMA-IN-2023RISLIT00172

PATIENT
  Sex: Male

DRUGS (1)
  1. RISPERIDONE [Suspect]
     Active Substance: RISPERIDONE
     Indication: Exposure via breast milk
     Route: 063

REACTIONS (2)
  - Neonatal respiratory depression [Recovered/Resolved]
  - Exposure via breast milk [Unknown]
